FAERS Safety Report 7592145 (Version 2)
Quarter: 2013Q3

REPORT INFORMATION
  Report Type: Report from Study
  Country: ZW (occurrence: ZW)
  Receive Date: 20100917
  Receipt Date: 20130716
  Transmission Date: 20140515
  Serious: Yes (Other)
  Sender: FDA-Public Use
  Company Number: ZW-ABBOTT-10P-190-0670500-00

PATIENT
  Sex: 0

DRUGS (6)
  1. ALUVIA TABLETS [Suspect]
     Indication: HIV INFECTION
     Route: 048
     Dates: start: 20100712, end: 20100810
  2. RALTEGRAVIR [Concomitant]
     Indication: HIV INFECTION
     Dates: start: 20100712, end: 20100809
  3. STAVUDINE [Concomitant]
     Indication: HIV INFECTION
     Dates: start: 20060615, end: 20100712
  4. LAMIVUDINE [Concomitant]
     Indication: HIV INFECTION
     Dates: start: 20060615, end: 20100712
  5. NEVIRAPINE [Concomitant]
     Indication: HIV INFECTION
     Dates: start: 20060615, end: 20100712
  6. CO-TRIMOXAZOLE [Concomitant]
     Indication: PRODUCT USED FOR UNKNOWN INDICATION
     Dates: start: 20060615

REACTIONS (4)
  - Hepatic enzyme increased [Recovered/Resolved]
  - Lip swelling [Not Recovered/Not Resolved]
  - Rash pustular [Not Recovered/Not Resolved]
  - Hypersensitivity [Recovered/Resolved]
